FAERS Safety Report 6302372-X (Version None)
Quarter: 2009Q3

REPORT INFORMATION
  Report Type: 
  Country: None (occurrence: None)
  Receive Date: 20090810
  Receipt Date: 20090728
  Transmission Date: 20100115
  Serious: Yes (Hospitalization)
  Sender: FDA-Public Use
  Company Number: US-JNJFOC-20090708802

PATIENT
  Age: 4 Year
  Sex: Female

DRUGS (2)
  1. ACETAMINOPHEN [Suspect]
  2. ACETAMINOPHEN [Suspect]
     Indication: PYREXIA

REACTIONS (3)
  - ACCIDENTAL OVERDOSE [None]
  - HEPATOTOXICITY [None]
  - RENAL TUBULAR ACIDOSIS [None]
